FAERS Safety Report 7814175-5 (Version None)
Quarter: 2011Q4

REPORT INFORMATION
  Report Type: 
  Country: None (occurrence: None)
  Receive Date: 20111014
  Receipt Date: 20111010
  Transmission Date: 20120403
  Serious: Yes (Life-Threatening, Hospitalization)
  Sender: FDA-Public Use
  Company Number: GB-B.I. PHARMACEUTICALS,INC./RIDGEFIELD-2011-UK-01086UK

PATIENT
  Sex: Female

DRUGS (9)
  1. VERAPAMIL [Concomitant]
     Indication: HEART RATE IRREGULAR
  2. SPIRIVA RESPIMAT [Suspect]
     Indication: CHRONIC OBSTRUCTIVE PULMONARY DISEASE
     Dosage: 2 PUFFS OD
     Route: 055
  3. FLUTICASONE PROPIONATE/SALMETEROL [Concomitant]
     Indication: ASTHMA
  4. UNKNOWN MEDICATION [Concomitant]
     Indication: BLOOD CHOLESTEROL
  5. VENTOLIN [Concomitant]
     Indication: ASTHMA
  6. VENTOLIN [Concomitant]
     Indication: CHRONIC OBSTRUCTIVE PULMONARY DISEASE
  7. ADENOSINE [Suspect]
  8. FLUTICASONE PROPIONATE/SALMETEROL [Concomitant]
     Indication: CHRONIC OBSTRUCTIVE PULMONARY DISEASE
  9. UNKNOWN MEDICATION [Concomitant]
     Indication: DYSPEPSIA

REACTIONS (1)
  - CARDIAC ARREST [None]
